FAERS Safety Report 17853653 (Version 1)
Quarter: 2020Q2

REPORT INFORMATION
  Report Type: Spontaneous
  Country: CA (occurrence: CA)
  Receive Date: 20200602
  Receipt Date: 20200602
  Transmission Date: 20200714
  Serious: Yes (Other)
  Sender: FDA-Public Use
  Company Number: NVSC2020CA152554

PATIENT
  Age: 71 Year
  Sex: Female
  Weight: 72.57 kg

DRUGS (1)
  1. XIIDRA [Suspect]
     Active Substance: LIFITEGRAST
     Indication: PRODUCT USED FOR UNKNOWN INDICATION
     Dosage: 0.2 ML, BID (0.2 %)
     Route: 047
     Dates: start: 20200511, end: 20200525

REACTIONS (6)
  - Vision blurred [Unknown]
  - Eye pain [Unknown]
  - Eye irritation [Unknown]
  - Eye swelling [Unknown]
  - Eye discharge [Unknown]
  - Headache [Unknown]

NARRATIVE: CASE EVENT DATE: 20200511
